FAERS Safety Report 12438828 (Version 4)
Quarter: 2016Q3

REPORT INFORMATION
  Report Type: Spontaneous
  Country: FR (occurrence: FR)
  Receive Date: 20160606
  Receipt Date: 20160817
  Transmission Date: 20161109
  Serious: Yes (Other)
  Sender: FDA-Public Use
  Company Number: FR-TEVA-663591ISR

PATIENT
  Age: 69 Year
  Sex: Female

DRUGS (4)
  1. IFOSFAMIDE EG [Suspect]
     Active Substance: IFOSFAMIDE
     Indication: LYMPHOCYTIC LYMPHOMA
     Dosage: CHEMOTHERAPY PROTOCOL R-MIV
     Route: 042
     Dates: start: 20160422, end: 20160423
  2. MABTHERA [Suspect]
     Active Substance: RITUXIMAB
     Indication: LYMPHOCYTIC LYMPHOMA
     Dosage: CHEMOTHERAPY PROTOCOL R-MIV
     Route: 042
     Dates: start: 20160422, end: 20160423
  3. UROMITEXAN [Suspect]
     Active Substance: MESNA
     Indication: LYMPHOCYTIC LYMPHOMA
     Dosage: CHEMOTHERAPY PROTOCOL R-MIV
     Route: 042
     Dates: start: 20160422, end: 20160423
  4. ETOPOSIDE TEVA [Suspect]
     Active Substance: ETOPOSIDE
     Indication: LYMPHOCYTIC LYMPHOMA
     Dosage: CHEMOTHERAPY PROTOCOL R-MIV
     Route: 042
     Dates: start: 20160422, end: 20160423

REACTIONS (2)
  - Status epilepticus [Recovered/Resolved]
  - Confusional state [Recovered/Resolved]

NARRATIVE: CASE EVENT DATE: 20160423
